FAERS Safety Report 4337827-0 (Version None)
Quarter: 2004Q2

REPORT INFORMATION
  Report Type: 
  Country: None (occurrence: None)
  Receive Date: 20040406
  Receipt Date: 20040129
  Transmission Date: 20050107
  Serious: No
  Sender: FDA-Public Use
  Company Number: APP200400109 (0)

PATIENT
  Sex: Male

DRUGS (1)
  1. HEPARIN SODIUM INJECTION [Suspect]
     Indication: ANTICOAGULANT THERAPY
     Dosage: 500 USP UNITS, REPEAT DOSE OF 1000 USP UNITS (500 USP UNITS, 2 IN 1 D), INTRAVENOUS
     Route: 042
     Dates: start: 20040126, end: 20040126

REACTIONS (1)
  - DRUG INEFFECTIVE [None]
